FAERS Safety Report 4721551-6 (Version None)
Quarter: 2005Q3

REPORT INFORMATION
  Report Type: 
  Country: None (occurrence: None)
  Receive Date: 20050721
  Receipt Date: 20041118
  Transmission Date: 20060218
  Serious: No
  Sender: FDA-Public Use
  Company Number: US-BRISTOL-MYERS SQUIBB COMPANY-12770376

PATIENT
  Age: 21 Year
  Sex: Female
  Weight: 61 kg

DRUGS (4)
  1. COUMADIN [Suspect]
     Indication: DEEP VEIN THROMBOSIS
     Dosage: TAKING FOR THE ^LAST YEAR^; 1ST 8 MONTHS TOOK BETWEEN 7MG + 7.5MG QD; LAST 2 MONTHS, 10MG QD
     Route: 048
     Dates: start: 20030101
  2. MARIJUANA [Suspect]
  3. TRIPHASIL-28 [Concomitant]
  4. ULTRACET [Concomitant]
     Dosage: TAKEN ONCE ON 15-NOV-2004
     Dates: start: 20041115

REACTIONS (1)
  - INTERNATIONAL NORMALISED RATIO ABNORMAL [None]
